FAERS Safety Report 9857135 (Version 3)
Quarter: 2014Q1

REPORT INFORMATION
  Report Type: Spontaneous
  Country: DK (occurrence: None)
  Receive Date: 20140128
  Receipt Date: 20140219
  Transmission Date: 20141002
  Serious: Yes (Other)
  Sender: FDA-Public Use
  Company Number: AUR-APL-2014-00640

PATIENT
  Age: 49 Year
  Sex: Male
  Weight: 85 kg

DRUGS (2)
  1. LAMOTRIGINE [Suspect]
     Indication: EPILEPSY
     Dates: start: 2005
  2. PLENDIL (FELODIPINE) [Concomitant]

REACTIONS (10)
  - Diarrhoea [None]
  - Somnolence [None]
  - Chronic obstructive pulmonary disease [None]
  - Product substitution issue [None]
  - Therapy change [None]
  - Convulsion [None]
  - Exercise tolerance decreased [None]
  - Ventricular extrasystoles [None]
  - Heart rate abnormal [None]
  - Arteriosclerosis coronary artery [None]
